FAERS Safety Report 5802786-8 (Version None)
Quarter: 2008Q3

REPORT INFORMATION
  Report Type: 
  Country: None (occurrence: None)
  Receive Date: 20080708
  Receipt Date: 20080627
  Transmission Date: 20090109
  Serious: Yes (Other)
  Sender: FDA-Public Use
  Company Number: JP-ELI_LILLY_AND_COMPANY-JP200807000869

PATIENT
  Sex: Male
  Weight: 64 kg

DRUGS (20)
  1. PEMETREXED [Suspect]
     Indication: PLEURAL MESOTHELIOMA MALIGNANT
     Dosage: 750 MG, OTHER
     Route: 042
     Dates: start: 20071024, end: 20080121
  2. CISPLATIN [Suspect]
     Indication: PLEURAL MESOTHELIOMA MALIGNANT
     Dosage: 90 MG, OTHER
     Route: 042
     Dates: start: 20071024, end: 20071119
  3. CISPLATIN [Suspect]
     Dosage: 80 MG, OTHER
     Route: 042
     Dates: start: 20071217, end: 20080121
  4. PANVITAN [Concomitant]
     Dosage: 1 G, DAILY (1/D)
     Route: 048
     Dates: start: 20071017, end: 20080228
  5. CYANOCOBALAMIN [Concomitant]
     Dosage: 1 MG, DAILY (1/D)
     Route: 030
     Dates: start: 20071017, end: 20071017
  6. DECADRON [Concomitant]
     Indication: PROPHYLAXIS
     Dosage: 16 MG, DAILY (1/D)
     Route: 042
     Dates: start: 20071024, end: 20080124
  7. NASEA [Concomitant]
     Indication: PROPHYLAXIS
     Dosage: 0.3 MG, DAILY (1/D)
     Route: 042
     Dates: start: 20071024, end: 20080124
  8. GASTER [Concomitant]
     Indication: PROPHYLAXIS
     Dosage: 20 MG, DAILY (1/D)
     Route: 042
     Dates: start: 20071024, end: 20071024
  9. MUCOSTA [Concomitant]
     Indication: PROPHYLAXIS
     Dosage: 300 MG, DAILY (1/D)
     Route: 048
  10. FLOMOX [Concomitant]
     Indication: PROPHYLAXIS
     Dosage: 300 MG, DAILY (1/D)
     Route: 048
     Dates: start: 20071119, end: 20071207
  11. NOVAMIN [Concomitant]
     Indication: PROPHYLAXIS
     Dosage: 10 MG, DAILY (1/D)
     Route: 048
     Dates: start: 20071221, end: 20080104
  12. FAMOTIDINE [Concomitant]
     Indication: PROPHYLAXIS
     Dosage: 40 MG, DAILY (1/D)
     Route: 048
     Dates: start: 20071118
  13. NOVOLIN R [Concomitant]
     Indication: DIABETES MELLITUS
     Dosage: 28 U, DAILY (1/D)
     Route: 058
  14. NOVOLIN N [Concomitant]
     Indication: DIABETES MELLITUS
     Dosage: 6 U, DAILY (1/D)
     Route: 058
  15. TAMSULOSIN HCL [Concomitant]
     Indication: BENIGN PROSTATIC HYPERPLASIA
     Dosage: 0.2 MG, DAILY (1/D)
     Route: 048
  16. EURODIN [Concomitant]
     Indication: INSOMNIA
     Dosage: 2 MG, DAILY (1/D)
     Route: 048
  17. GLYSENNID [Concomitant]
     Indication: CONSTIPATION
     Dosage: 24 MG, DAILY (1/D)
     Route: 048
  18. ADALAT [Concomitant]
     Indication: HYPERTENSION
     Dosage: 20 MG, DAILY (1/D)
     Route: 048
  19. MYSLEE [Concomitant]
     Indication: INSOMNIA
     Dosage: 5 MG, DAILY (1/D)
     Route: 048
  20. ADONA [Concomitant]
     Indication: DIABETIC RETINOPATHY
     Dosage: 30 MG, DAILY (1/D)
     Route: 048
     Dates: start: 20071030, end: 20071107

REACTIONS (1)
  - BLOOD URIC ACID INCREASED [None]
